FAERS Safety Report 7750483-4 (Version None)
Quarter: 2011Q3

REPORT INFORMATION
  Report Type: 
  Country: None (occurrence: None)
  Receive Date: 20110914
  Receipt Date: 20110909
  Transmission Date: 20111222
  Serious: Yes (Hospitalization)
  Sender: FDA-Public Use
  Company Number: US-EISAI INC-E2020-09715-SPO-US

PATIENT
  Age: 14 Month
  Sex: Male

DRUGS (1)
  1. ARICEPT [Suspect]
     Route: 048

REACTIONS (7)
  - MENTAL STATUS CHANGES [None]
  - ACCIDENTAL EXPOSURE [None]
  - DROOLING [None]
  - BRADYCARDIA [None]
  - DIARRHOEA [None]
  - VOMITING [None]
  - SOMNOLENCE [None]
